FAERS Safety Report 10573838 (Version 5)
Quarter: 2015Q3

REPORT INFORMATION
  Report Type: Spontaneous
  Country: US (occurrence: US)
  Receive Date: 20141110
  Receipt Date: 20150728
  Transmission Date: 20151125
  Serious: No
  Sender: FDA-Public Use
  Company Number: US-GLAXOSMITHKLINE-A1086096A

PATIENT

DRUGS (9)
  1. OXYCONTIN [Concomitant]
     Active Substance: OXYCODONE HYDROCHLORIDE
  2. LAMOTRIGINE PROLONGED-RELEASE TABLET [Suspect]
     Active Substance: LAMOTRIGINE
     Indication: PRODUCT USED FOR UNKNOWN INDICATION
     Route: 048
  3. LAMICTAL [Suspect]
     Active Substance: LAMOTRIGINE
     Indication: SEIZURE
  4. LAMICTAL XR [Suspect]
     Active Substance: LAMOTRIGINE
     Indication: SEIZURE
     Dosage: 300 MG, QD (100 MG IN AM, 200 MG IN PM)
     Route: 048
     Dates: start: 201401
  5. LAMICTAL XR [Suspect]
     Active Substance: LAMOTRIGINE
     Dosage: 200 MG, U
     Route: 048
  6. KEPPRA XR [Concomitant]
     Active Substance: LEVETIRACETAM
  7. KEPPRA [Concomitant]
     Active Substance: LEVETIRACETAM
  8. TRILEPTAL [Concomitant]
     Active Substance: OXCARBAZEPINE
  9. LAMICTAL XR [Suspect]
     Active Substance: LAMOTRIGINE
     Dosage: 100 MG, BID
     Route: 048
     Dates: start: 2013

REACTIONS (4)
  - Tinnitus [Recovered/Resolved]
  - Nervousness [Recovered/Resolved]
  - Drug effect increased [Recovered/Resolved]
  - Drug administration error [Unknown]

NARRATIVE: CASE EVENT DATE: 201408
